FAERS Safety Report 5637358-1 (Version None)
Quarter: 2008Q1

REPORT INFORMATION
  Report Type: 
  Country: None (occurrence: None)
  Receive Date: 20080225
  Receipt Date: 20080218
  Transmission Date: 20080703
  Serious: No
  Sender: FDA-Public Use
  Company Number: US-BAXTER-2008BH001555

PATIENT
  Age: 10 Year

DRUGS (1)
  1. FENTANYL CITRATE [Suspect]
     Indication: DRUG USE FOR UNKNOWN INDICATION
     Dosage: DOSE UNIT:CUBIC CENTIMETER
     Route: 065
     Dates: start: 20080203, end: 20080203

REACTIONS (3)
  - ACCIDENTAL OVERDOSE [None]
  - LETHARGY [None]
  - RESPIRATORY RATE DECREASED [None]
